FAERS Safety Report 9016012 (Version 1)
Quarter: 2013Q1

REPORT INFORMATION
  Report Type: Report from Study
  Country: US (occurrence: US)
  Receive Date: 20130116
  Receipt Date: 20130116
  Transmission Date: 20140127
  Serious: Yes (Other)
  Sender: FDA-Public Use
  Company Number: US-BRISTOL-MYERS SQUIBB COMPANY-17277864

PATIENT
  Age: 41 Year
  Sex: Female
  Weight: 72.9 kg

DRUGS (2)
  1. IXEMPRA [Suspect]
     Indication: BREAST CANCER
     Dosage: LAST ADMINISTERED DOSE:02-APR-2012
     Route: 042
     Dates: start: 20120312
  2. TORISEL [Suspect]
     Indication: BREAST CANCER
     Dosage: LAST ADMINISTERED DOSE:03-APR-2012
     Dates: start: 201212

REACTIONS (1)
  - Hypophosphataemia [Recovered/Resolved]
